FAERS Safety Report 8176661-0 (Version None)
Quarter: 2012Q1

REPORT INFORMATION
  Report Type: 
  Country: None (occurrence: None)
  Receive Date: 20120301
  Receipt Date: 20120222
  Transmission Date: 20120608
  Serious: Yes (Other)
  Sender: FDA-Public Use
  Company Number: CA-JNJFOC-20120212434

PATIENT
  Sex: Male
  Weight: 63 kg

DRUGS (1)
  1. REMICADE [Suspect]
     Indication: CROHN'S DISEASE
     Dosage: FIRST LOADING DOSE
     Route: 042
     Dates: start: 20120109

REACTIONS (3)
  - OEDEMA PERIPHERAL [None]
  - CROHN'S DISEASE [None]
  - CYST [None]
